FAERS Safety Report 6341438-5 (Version None)
Quarter: 2009Q3

REPORT INFORMATION
  Report Type: 
  Country: None (occurrence: None)
  Receive Date: 20090902
  Receipt Date: 20090902
  Transmission Date: 20100115
  Serious: Yes (Other)
  Sender: FDA-Public Use
  Company Number: None

PATIENT
  Age: 54 Year
  Sex: Male
  Weight: 86.1834 kg

DRUGS (10)
  1. VIAGRA [Suspect]
     Indication: ERECTILE DYSFUNCTION
     Dosage: 100 MG AS NEEDED PO
     Route: 048
     Dates: start: 20050105, end: 20090831
  2. CRESTOR [Concomitant]
  3. NIASPAN [Concomitant]
  4. NUTRTIONAL SUPPLEMENTS [Concomitant]
  5. ASCORBIC ACID [Concomitant]
  6. ARGININE [Concomitant]
  7. VITAMIN B-12 [Concomitant]
  8. PYRIDOXINE HCL [Concomitant]
  9. EPIMEDIUM [Concomitant]
  10. GARLIC [Concomitant]

REACTIONS (1)
  - EYE HAEMORRHAGE [None]
